FAERS Safety Report 9015287 (Version 2)
Quarter: 2013Q1

REPORT INFORMATION
  Report Type: Spontaneous
  Country: IT (occurrence: IT)
  Receive Date: 20130116
  Receipt Date: 20130123
  Transmission Date: 20140127
  Serious: Yes (Hospitalization)
  Sender: FDA-Public Use
  Company Number: IT-SANOFI-AVENTIS-2013SA002668

PATIENT
  Age: 73 Year
  Sex: Male

DRUGS (10)
  1. LANSOPRAZOLE [Suspect]
     Indication: GASTROOESOPHAGEAL REFLUX DISEASE
     Route: 048
     Dates: start: 20121226, end: 20130108
  2. LASIX [Suspect]
     Indication: POLYURIA
     Route: 048
     Dates: start: 20121226, end: 20130108
  3. CARVEDILOL [Suspect]
     Indication: CARDIOMEGALY
     Route: 048
     Dates: start: 20121226, end: 20130108
  4. TRIATEC [Suspect]
     Indication: ESSENTIAL HYPERTENSION
     Dosage: DAILY DOSE- 2 MG (2.5 MG)
     Route: 048
     Dates: start: 20121226, end: 20130108
  5. LEVOFLOXACIN [Suspect]
     Indication: PNEUMONITIS
     Route: 048
     Dates: start: 20121226, end: 20130104
  6. CLENIL [Suspect]
     Indication: PNEUMONITIS
     Route: 045
     Dates: start: 20121226, end: 20130101
  7. BRONCOVALEAS [Suspect]
     Indication: PNEUMONITIS
     Dosage: ROUTE-INHALATION
     Route: 055
     Dates: start: 20130101, end: 20130107
  8. CARDIOASPIRIN [Suspect]
     Indication: ANTICOAGULANT THERAPY
     Route: 048
     Dates: start: 20121226, end: 20121229
  9. NITRO-DUR [Suspect]
     Indication: ANGINA UNSTABLE
     Route: 062
  10. METFORMIN [Suspect]
     Indication: TYPE 2 DIABETES MELLITUS
     Route: 048
     Dates: start: 20121226, end: 20121229

REACTIONS (1)
  - Tendonitis [Unknown]
